FAERS Safety Report 12437186 (Version 1)
Quarter: 2016Q2

REPORT INFORMATION
  Report Type: Spontaneous
  Country: US (occurrence: None)
  Receive Date: 20160603
  Receipt Date: 20160603
  Transmission Date: 20160815
  Serious: No
  Sender: FDA-Public Use
  Company Number: None

PATIENT
  Age: 59 Year
  Sex: Female

DRUGS (12)
  1. BACLOFEN. [Concomitant]
     Active Substance: BACLOFEN
  2. MESALAMINE. [Concomitant]
     Active Substance: MESALAMINE
  3. TIZANIDINE. [Concomitant]
     Active Substance: TIZANIDINE
  4. OXYBUTYNIN [Concomitant]
     Active Substance: OXYBUTYNIN
  5. NAPROXEN. [Concomitant]
     Active Substance: NAPROXEN
  6. LOPERAMIDE [Concomitant]
     Active Substance: LOPERAMIDE
  7. ERGOCALCIFEROL. [Concomitant]
     Active Substance: ERGOCALCIFEROL
  8. OMEPRAZOLE. [Concomitant]
     Active Substance: OMEPRAZOLE
  9. ATENOLOL. [Concomitant]
     Active Substance: ATENOLOL
  10. AMPYRA [Suspect]
     Active Substance: DALFAMPRIDINE
     Indication: MULTIPLE SCLEROSIS
     Route: 048
     Dates: start: 201204
  11. CITALOPRAM [Concomitant]
     Active Substance: CITALOPRAM HYDROBROMIDE
  12. VITAMIN D2 [Concomitant]
     Active Substance: ERGOCALCIFEROL

REACTIONS (1)
  - Urinary tract infection [None]

NARRATIVE: CASE EVENT DATE: 20160426
